FAERS Safety Report 6168396-0 (Version None)
Quarter: 2009Q2

REPORT INFORMATION
  Report Type: 
  Country: None (occurrence: None)
  Receive Date: 20090427
  Receipt Date: 20090422
  Transmission Date: 20091009
  Serious: Yes (Life-Threatening)
  Sender: FDA-Public Use
  Company Number: JP-BRISTOL-MYERS SQUIBB COMPANY-14571236

PATIENT
  Age: 71 Year
  Sex: Female
  Weight: 54 kg

DRUGS (6)
  1. ERBITUX [Suspect]
     Indication: COLON CANCER
     Dosage: IST INF- 500MG ON 6MAR09 1 IN 1 WEEK, 2 INF: 300MG ON 13MAR09 1 IN 1 WEEK
     Route: 042
     Dates: start: 20090306, end: 20090313
  2. MAXIPIME [Suspect]
     Route: 042
     Dates: start: 20090319, end: 20090321
  3. TOPOTECIN [Suspect]
     Indication: COLON CANCER
     Route: 042
     Dates: start: 20090313, end: 20090313
  4. VENA [Concomitant]
     Indication: PREMEDICATION
     Dosage: ORALLY.
     Route: 042
     Dates: start: 20090306, end: 20090313
  5. DECADRON [Concomitant]
     Indication: PREMEDICATION
     Route: 042
     Dates: start: 20090306, end: 20090313
  6. SEROTONE [Concomitant]
     Indication: ANTIEMETIC SUPPORTIVE CARE
     Route: 042
     Dates: start: 20090306, end: 20090313

REACTIONS (1)
  - INTERSTITIAL LUNG DISEASE [None]
